FAERS Safety Report 10018004 (Version 1)
Quarter: 2014Q1

REPORT INFORMATION
  Report Type: Spontaneous
  Country: US (occurrence: None)
  Receive Date: 20140313
  Receipt Date: 20140313
  Transmission Date: 20141002
  Serious: Yes (Disabling)
  Sender: FDA-Public Use
  Company Number: None

PATIENT
  Age: 74 Year
  Sex: Female
  Weight: 50.8 kg

DRUGS (4)
  1. PROLIA [Suspect]
     Indication: OSTEOPOROSIS
     Dates: start: 20131023
  2. CALCIUM + D [Concomitant]
  3. WOMANS 50+ VITAMINS [Concomitant]
  4. AVORVASTATIN [Concomitant]

REACTIONS (7)
  - Dizziness [None]
  - Arthralgia [None]
  - Musculoskeletal pain [None]
  - Arthralgia [None]
  - Pain in extremity [None]
  - Arthralgia [None]
  - Blood cholesterol increased [None]
